FAERS Safety Report 17623326 (Version 2)
Quarter: 2020Q2

REPORT INFORMATION
  Report Type: Spontaneous
  Country: AT (occurrence: AT)
  Receive Date: 20200403
  Receipt Date: 20200424
  Transmission Date: 20200713
  Serious: Yes (Other)
  Sender: FDA-Public Use
  Company Number: AT-ASTRAZENECA-2020SE46384

PATIENT
  Age: 53 Year
  Sex: Female

DRUGS (7)
  1. ATEZOLIZUMAB. [Concomitant]
     Active Substance: ATEZOLIZUMAB
     Route: 065
  2. DENOSUMAB [Concomitant]
     Active Substance: DENOSUMAB
     Route: 058
  3. BEVACIZUMAB. [Concomitant]
     Active Substance: BEVACIZUMAB
     Route: 065
  4. PACLITAXEL. [Concomitant]
     Active Substance: PACLITAXEL
     Route: 065
  5. TAGRISSO [Suspect]
     Active Substance: OSIMERTINIB
     Indication: LUNG ADENOCARCINOMA
     Route: 048
     Dates: start: 201706, end: 201707
  6. TAGRISSO [Suspect]
     Active Substance: OSIMERTINIB
     Indication: LUNG ADENOCARCINOMA
     Route: 048
     Dates: start: 201707, end: 201905
  7. CARBOPLATIN. [Concomitant]
     Active Substance: CARBOPLATIN
     Route: 065

REACTIONS (8)
  - Disease recurrence [Unknown]
  - Hydronephrosis [Recovered/Resolved]
  - Paronychia [Unknown]
  - Disease progression [Unknown]
  - Renal failure [Unknown]
  - Skin disorder [Unknown]
  - Metastasis [Unknown]
  - Radiation pneumonitis [Unknown]

NARRATIVE: CASE EVENT DATE: 201706
